FAERS Safety Report 13399874 (Version 1)
Quarter: 2017Q2

REPORT INFORMATION
  Report Type: Report from Study
  Country: DE (occurrence: DE)
  Receive Date: 20170404
  Receipt Date: 20170404
  Transmission Date: 20170830
  Serious: Yes (Other)
  Sender: FDA-Public Use
  Company Number: DE-JNJFOC-20161022016

PATIENT
  Age: 52 Year
  Sex: Male
  Weight: 78 kg

DRUGS (5)
  1. THYROXIN [Concomitant]
     Active Substance: LEVOTHYROXINE
     Route: 065
  2. PANTOZOL [Concomitant]
     Active Substance: PANTOPRAZOLE SODIUM
     Route: 065
     Dates: start: 20150528
  3. OLYSIO [Suspect]
     Active Substance: SIMEPREVIR
     Indication: CHRONIC HEPATITIS C
     Route: 048
     Dates: start: 20150210, end: 20150503
  4. SOVALDI [Suspect]
     Active Substance: SOFOSBUVIR
     Indication: CHRONIC HEPATITIS C
     Route: 048
     Dates: start: 20150210, end: 20150503
  5. RAMIPRIL. [Concomitant]
     Active Substance: RAMIPRIL
     Route: 065
     Dates: start: 20150528

REACTIONS (3)
  - Hepatitis C [Not Recovered/Not Resolved]
  - Gingivitis [Recovering/Resolving]
  - Drug resistance [Unknown]

NARRATIVE: CASE EVENT DATE: 20150804
